FAERS Safety Report 10907555 (Version 2)
Quarter: 2015Q2

REPORT INFORMATION
  Report Type: Spontaneous
  Country: US (occurrence: US)
  Receive Date: 20150312
  Receipt Date: 20150409
  Transmission Date: 20150821
  Serious: No
  Sender: FDA-Public Use
  Company Number: US-PFIZER INC-2014275858

PATIENT
  Age: 67 Year
  Sex: Female

DRUGS (10)
  1. LIPITOR [Suspect]
     Active Substance: ATORVASTATIN CALCIUM
     Indication: BLOOD CHOLESTEROL
     Dosage: 10 MG, 1X/DAY (AT NIGHT)
     Dates: end: 2014
  2. D-BIOTIN [Concomitant]
     Dosage: 150 ?G, 2X/DAY
  3. METOPROLOL TARTRATE. [Concomitant]
     Active Substance: METOPROLOL TARTRATE
     Dosage: 25 MG, 2X/DAY
  4. ESTRACE [Concomitant]
     Active Substance: ESTRADIOL
     Dosage: 2 G, 2X/WEEK
  5. MAGNESIUM [Concomitant]
     Active Substance: MAGNESIUM
     Dosage: 400 MG, UNK
  6. VITAMIN C [Concomitant]
     Active Substance: ASCORBIC ACID
     Dosage: UNK
  7. ZINC [Concomitant]
     Active Substance: ZINC\ZINC CHLORIDE
     Dosage: 25 MG, UNK
  8. COLLAGEN [Concomitant]
     Active Substance: COLLAGEN
     Dosage: 500 MG, 2X/DAY
  9. CALCIUM CARBONATE W/CALCIUM GLUCONATE [Concomitant]
     Dosage: 1000 MG, UNK
  10. LIPITOR [Suspect]
     Active Substance: ATORVASTATIN CALCIUM
     Indication: LOW DENSITY LIPOPROTEIN INCREASED
     Dosage: UNK

REACTIONS (3)
  - Asthenia [Recovered/Resolved]
  - Fatigue [Unknown]
  - Arthralgia [Unknown]
